FAERS Safety Report 7113005-7 (Version None)
Quarter: 2010Q4

REPORT INFORMATION
  Report Type: 
  Country: None (occurrence: None)
  Receive Date: 20101119
  Receipt Date: 20101019
  Transmission Date: 20110411
  Serious: No
  Sender: FDA-Public Use
  Company Number: US-ASTRAZENECA-2010SE49369

PATIENT
  Age: 64 Year
  Sex: Female

DRUGS (1)
  1. VIMOVO [Suspect]
     Indication: MUSCLE SPASMS
     Route: 048

REACTIONS (4)
  - ABDOMINAL DISTENSION [None]
  - ABDOMINAL TENDERNESS [None]
  - ERYTHEMA [None]
  - PARAESTHESIA [None]
